FAERS Safety Report 20037073 (Version 23)
Quarter: 2025Q2

REPORT INFORMATION
  Report Type: Spontaneous
  Country: GB (occurrence: GB)
  Receive Date: 20211105
  Receipt Date: 20250611
  Transmission Date: 20250716
  Serious: Yes (Hospitalization, Other)
  Sender: CELLTRION
  Company Number: GB-CELLTRION INC.-2021GB014828

PATIENT

DRUGS (89)
  1. TRASTUZUMAB [Suspect]
     Active Substance: TRASTUZUMAB
     Indication: Breast cancer metastatic
     Route: 042
     Dates: start: 20160323, end: 20160323
  2. TRASTUZUMAB [Suspect]
     Active Substance: TRASTUZUMAB
     Route: 041
     Dates: start: 20160323, end: 20160323
  3. TRASTUZUMAB [Suspect]
     Active Substance: TRASTUZUMAB
     Route: 042
     Dates: start: 20160413
  4. TRASTUZUMAB [Suspect]
     Active Substance: TRASTUZUMAB
     Route: 042
     Dates: start: 20160413
  5. DOCETAXEL [Suspect]
     Active Substance: DOCETAXEL
     Indication: Breast cancer metastatic
     Dosage: 140 MG, ONCE IN 2 WEEKS, DOSE FORM: 230 / 140 MG, QOW (ONCE IN 2 WEEKS)
     Route: 042
     Dates: start: 20160324, end: 20160526
  6. DOCETAXEL [Suspect]
     Active Substance: DOCETAXEL
     Indication: Product used for unknown indication
     Dosage: 140 MG, ONCE IN 2 WEEKS, DOSE FORM: 230
     Route: 042
     Dates: start: 20160324, end: 20160526
  7. DOCETAXEL [Suspect]
     Active Substance: DOCETAXEL
     Dosage: 110 MG, CYCLIC EVERY 2 WEEKS (THERAPY DISCONTINUED: PLANNED NUMBER OF CYCLES COMPLETED)
     Route: 042
     Dates: start: 20160526, end: 20160707
  8. DOCETAXEL [Suspect]
     Active Substance: DOCETAXEL
     Dosage: 110 MG, CYCLIC EVERY 2 WEEKS (THERAPY DISCONTINUED: PLANNED NUMBER OF CYCLES COMPLETED)
     Route: 042
     Dates: start: 20160526, end: 20160707
  9. DOCETAXEL [Suspect]
     Active Substance: DOCETAXEL
     Route: 042
     Dates: start: 20160324, end: 20160526
  10. DOCETAXEL [Suspect]
     Active Substance: DOCETAXEL
     Route: 042
     Dates: start: 20160526, end: 20160707
  11. DOCETAXEL [Suspect]
     Active Substance: DOCETAXEL
     Dosage: 110 MG, QOW
     Route: 042
     Dates: start: 20160526, end: 20160707
  12. DOCETAXEL [Suspect]
     Active Substance: DOCETAXEL
     Indication: Breast cancer metastatic
     Dosage: 140 MG, QOW (ONCE IN 2 WEEKS)
     Route: 042
     Dates: start: 20160324, end: 20160526
  13. DOCETAXEL [Suspect]
     Active Substance: DOCETAXEL
     Dosage: 110 MG, QOW
     Route: 042
     Dates: start: 20160526, end: 20160707
  14. PERTUZUMAB [Suspect]
     Active Substance: PERTUZUMAB
     Indication: Breast cancer metastatic
     Dosage: 1260 MILLIGRAM, 1 WEEK (420 MILLIGRAM, 3XW ) DOSE FORM: 230 / 1260 MG, QW
     Route: 042
  15. PERTUZUMAB [Suspect]
     Active Substance: PERTUZUMAB
     Dosage: 1260 MILLIGRAM, 1 WEEK (420 MILLIGRAM, 3XW ) DOSE FORM: 230, CYCLICAL (1 WEEK (420 MILLIGRAM, 3XW)
     Route: 042
  16. PERTUZUMAB [Suspect]
     Active Substance: PERTUZUMAB
     Dosage: 420 MG, TIW (EVERY 3 WEEKS ), DOSE FORM: 230 (CUMULATIVE DOSE: 399.16666 MG)
     Route: 042
     Dates: start: 20160413
  17. PERTUZUMAB [Suspect]
     Active Substance: PERTUZUMAB
     Route: 042
     Dates: start: 20160413
  18. PERTUZUMAB [Suspect]
     Active Substance: PERTUZUMAB
     Route: 042
     Dates: start: 20160324, end: 20160324
  19. PERTUZUMAB [Suspect]
     Active Substance: PERTUZUMAB
     Route: 042
     Dates: start: 20160324, end: 20160324
  20. PERTUZUMAB [Suspect]
     Active Substance: PERTUZUMAB
     Dosage: 1260 MILLIGRAM, 1/WEEK, 420 MILLIGRAM(420 MG, Q3W)UNK, DOSE FORM: 230
     Route: 042
  21. PERTUZUMAB [Suspect]
     Active Substance: PERTUZUMAB
     Dosage: 1260 MILLIGRAM, 1/WEEK, 420 MILLIGRAM(420 MG, Q3W)UNK, DOSE FORM: 230
     Route: 042
  22. PERTUZUMAB [Suspect]
     Active Substance: PERTUZUMAB
     Route: 042
  23. PERTUZUMAB [Suspect]
     Active Substance: PERTUZUMAB
     Route: 042
  24. PERTUZUMAB [Suspect]
     Active Substance: PERTUZUMAB
     Route: 042
  25. PERTUZUMAB [Suspect]
     Active Substance: PERTUZUMAB
     Dosage: 1260 MILLIGRAM, 1 WEEK (420 MILLIGRAM, 3XW ) (PAHARMACEUTICAL DOSE FORM: 230)
     Route: 042
  26. PERTUZUMAB [Suspect]
     Active Substance: PERTUZUMAB
     Route: 042
  27. PERTUZUMAB [Suspect]
     Active Substance: PERTUZUMAB
     Route: 042
     Dates: start: 20160413
  28. PERTUZUMAB [Suspect]
     Active Substance: PERTUZUMAB
     Route: 042
     Dates: start: 20160324, end: 20160324
  29. PERTUZUMAB [Suspect]
     Active Substance: PERTUZUMAB
     Dosage: 1260 MILLIGRAM, 1 WEEK (420 MILLIGRAM, 3XW )/1260 MG, QW
     Route: 042
  30. PERTUZUMAB [Suspect]
     Active Substance: PERTUZUMAB
     Route: 042
  31. PERTUZUMAB [Suspect]
     Active Substance: PERTUZUMAB
     Route: 042
     Dates: start: 20160413
  32. TAMOXIFEN [Suspect]
     Active Substance: TAMOXIFEN
     Indication: Breast cancer metastatic
     Route: 048
     Dates: start: 201603
  33. TAMOXIFEN [Suspect]
     Active Substance: TAMOXIFEN
     Route: 048
     Dates: start: 201603
  34. TAMOXIFEN CITRATE [Suspect]
     Active Substance: TAMOXIFEN CITRATE
     Indication: Breast cancer metastatic
     Route: 048
     Dates: start: 201603
  35. ACETAMINOPHEN [Concomitant]
     Active Substance: ACETAMINOPHEN
     Indication: Product used for unknown indication
     Route: 065
  36. ACETAMINOPHEN [Concomitant]
     Active Substance: ACETAMINOPHEN
     Route: 065
  37. ACETAMINOPHEN [Concomitant]
     Active Substance: ACETAMINOPHEN
  38. ACETAMINOPHEN [Concomitant]
     Active Substance: ACETAMINOPHEN
     Indication: Product used for unknown indication
     Route: 048
     Dates: start: 20170724
  39. ACETAMINOPHEN [Concomitant]
     Active Substance: ACETAMINOPHEN
  40. DALTEPARIN [Concomitant]
     Active Substance: DALTEPARIN
     Indication: Thrombosis prophylaxis
     Route: 058
     Dates: start: 20160802, end: 20160809
  41. DALTEPARIN [Concomitant]
     Active Substance: DALTEPARIN
     Indication: Thrombosis prophylaxis
     Route: 058
     Dates: start: 20160802, end: 20160809
  42. DALTEPARIN [Concomitant]
     Active Substance: DALTEPARIN
     Route: 065
  43. DALTEPARIN [Concomitant]
     Active Substance: DALTEPARIN
     Route: 065
  44. DALTEPARIN [Concomitant]
     Active Substance: DALTEPARIN
  45. DALTEPARIN [Concomitant]
     Active Substance: DALTEPARIN
     Route: 058
     Dates: start: 20160802, end: 20160809
  46. DALTEPARIN [Concomitant]
     Active Substance: DALTEPARIN
  47. DALTEPARIN [Concomitant]
     Active Substance: DALTEPARIN
  48. DALTEPARIN [Concomitant]
     Active Substance: DALTEPARIN
     Dates: start: 20160802, end: 20160809
  49. DALTEPARIN [Concomitant]
     Active Substance: DALTEPARIN
  50. DALTEPARIN [Concomitant]
     Active Substance: DALTEPARIN
     Dates: start: 20160802, end: 20160809
  51. DALTEPARIN [Concomitant]
     Active Substance: DALTEPARIN
     Dates: start: 20160802, end: 20160809
  52. DALTEPARIN [Concomitant]
     Active Substance: DALTEPARIN
     Indication: Thrombosis prophylaxis
     Route: 058
     Dates: start: 20160802, end: 20160809
  53. DALTEPARIN [Concomitant]
     Active Substance: DALTEPARIN
     Route: 058
     Dates: start: 20170724
  54. DALTEPARIN [Concomitant]
     Active Substance: DALTEPARIN
     Route: 058
  55. DENOSUMAB [Concomitant]
     Active Substance: DENOSUMAB
     Indication: Breast cancer metastatic
     Route: 065
  56. DENOSUMAB [Concomitant]
     Active Substance: DENOSUMAB
     Indication: Metastases to bone
     Route: 058
     Dates: start: 20160323
  57. DENOSUMAB [Concomitant]
     Active Substance: DENOSUMAB
     Route: 065
  58. DENOSUMAB [Concomitant]
     Active Substance: DENOSUMAB
     Route: 065
  59. DENOSUMAB [Concomitant]
     Active Substance: DENOSUMAB
     Route: 065
  60. DENOSUMAB [Concomitant]
     Active Substance: DENOSUMAB
     Route: 058
  61. DENOSUMAB [Concomitant]
     Active Substance: DENOSUMAB
  62. DENOSUMAB [Concomitant]
     Active Substance: DENOSUMAB
  63. DENOSUMAB [Concomitant]
     Active Substance: DENOSUMAB
     Dosage: 120 MG, Q4W (EVERY 28 DAYS)
     Route: 058
     Dates: start: 20160323
  64. DEXAMETHASONE [Concomitant]
     Active Substance: DEXAMETHASONE
     Indication: Metastases to bone
     Route: 042
     Dates: start: 20160324
  65. DEXAMETHASONE [Concomitant]
     Active Substance: DEXAMETHASONE
     Indication: Breast cancer metastatic
     Route: 042
     Dates: start: 20191113
  66. DEXAMETHASONE [Concomitant]
     Active Substance: DEXAMETHASONE
  67. DEXAMETHASONE [Concomitant]
     Active Substance: DEXAMETHASONE
     Route: 042
     Dates: start: 20191113
  68. DEXAMETHASONE [Concomitant]
     Active Substance: DEXAMETHASONE
     Route: 042
     Dates: start: 20160324
  69. DEXAMETHASONE [Concomitant]
     Active Substance: DEXAMETHASONE
     Indication: Breast cancer metastatic
     Route: 042
     Dates: start: 20160324
  70. DEXAMETHASONE [Concomitant]
     Active Substance: DEXAMETHASONE
     Indication: Metastases to bone
     Route: 042
     Dates: start: 20191113
  71. CITALOPRAM [Concomitant]
     Active Substance: CITALOPRAM
     Indication: Thrombosis prophylaxis
     Route: 048
     Dates: start: 201003
  72. CITALOPRAM [Concomitant]
     Active Substance: CITALOPRAM
     Route: 048
     Dates: start: 201003
  73. CITALOPRAM [Concomitant]
     Active Substance: CITALOPRAM
     Dates: start: 201003
  74. CITALOPRAM [Concomitant]
     Active Substance: CITALOPRAM
     Route: 048
     Dates: start: 201003
  75. OMEPRAZOLE [Concomitant]
     Active Substance: OMEPRAZOLE
     Indication: Dyspepsia
     Route: 048
     Dates: start: 20170727
  76. OMEPRAZOLE [Concomitant]
     Active Substance: OMEPRAZOLE
     Indication: Dyspepsia
  77. OMEPRAZOLE [Concomitant]
     Active Substance: OMEPRAZOLE
     Route: 065
     Dates: start: 20170727
  78. OMEPRAZOLE [Concomitant]
     Active Substance: OMEPRAZOLE
     Route: 048
     Dates: start: 20170727
  79. OMEPRAZOLE [Concomitant]
     Active Substance: OMEPRAZOLE
  80. OMEPRAZOLE [Concomitant]
     Active Substance: OMEPRAZOLE
     Dates: start: 20170727
  81. OMEPRAZOLE [Concomitant]
     Active Substance: OMEPRAZOLE
     Dates: start: 20170727
  82. OMEPRAZOLE [Concomitant]
     Active Substance: OMEPRAZOLE
     Dates: start: 20170727
  83. OMEPRAZOLE [Concomitant]
     Active Substance: OMEPRAZOLE
     Dates: start: 20170727
  84. TRAMADOL [Concomitant]
     Active Substance: TRAMADOL
     Route: 048
     Dates: start: 20170724
  85. POTASSIUM CHLORIDE [Concomitant]
     Active Substance: POTASSIUM CHLORIDE
     Route: 048
     Dates: start: 20170724
  86. CEFTRIAXONE [Concomitant]
     Active Substance: CEFTRIAXONE
     Dates: start: 20181128
  87. GENTAMICIN [Concomitant]
     Active Substance: GENTAMICIN
     Route: 042
     Dates: start: 20181128
  88. GLICLAZIDE [Concomitant]
     Active Substance: GLICLAZIDE
     Route: 048
  89. PYRIDOXINE [Concomitant]
     Active Substance: PYRIDOXINE
     Indication: Infection
     Route: 048
     Dates: start: 20160810

REACTIONS (9)
  - Atrial thrombosis [Recovered/Resolved]
  - Joint stiffness [Recovered/Resolved]
  - Atrophic vulvovaginitis [Recovered/Resolved]
  - Musculoskeletal stiffness [Recovered/Resolved]
  - Fatigue [Recovered/Resolved]
  - Infection [Recovered/Resolved]
  - Influenza like illness [Recovered/Resolved]
  - Diarrhoea [Not Recovered/Not Resolved]
  - Off label use [Unknown]

NARRATIVE: CASE EVENT DATE: 20160324
